FAERS Safety Report 20119310 (Version 1)
Quarter: 2021Q4

REPORT INFORMATION
  Report Type: Spontaneous
  Country: US (occurrence: US)
  Receive Date: 20211126
  Receipt Date: 20211126
  Transmission Date: 20220304
  Serious: No
  Sender: FDA-Public Use
  Company Number: US-ORGANON-O2111USA002668

PATIENT
  Sex: Male

DRUGS (1)
  1. COZAAR [Suspect]
     Active Substance: LOSARTAN POTASSIUM
     Dosage: 50 MILLIGRAM ONCE DAILY
     Route: 048

REACTIONS (4)
  - Chest pain [Unknown]
  - Blood pressure increased [Unknown]
  - Product dose omission issue [Unknown]
  - Product availability issue [Unknown]
